FAERS Safety Report 5955698-3 (Version None)
Quarter: 2008Q4

REPORT INFORMATION
  Report Type: 
  Country: None (occurrence: None)
  Receive Date: 20081112
  Receipt Date: 20081031
  Transmission Date: 20090506
  Serious: Yes (Hospitalization)
  Sender: FDA-Public Use
  Company Number: GXKR2008PL09939

PATIENT
  Age: 59 Year
  Sex: Male

DRUGS (1)
  1. ALLOPURINOL [Suspect]
     Indication: GOUT

REACTIONS (11)
  - ACIDOSIS [None]
  - ACUTE GENERALISED EXANTHEMATOUS PUSTULOSIS [None]
  - DIZZINESS [None]
  - HYPOALBUMINAEMIA [None]
  - HYPOKALAEMIA [None]
  - HYPONATRAEMIA [None]
  - OEDEMA PERIPHERAL [None]
  - PROTEIN URINE PRESENT [None]
  - SKIN DISCOLOURATION [None]
  - THROMBOCYTOPENIA [None]
  - URINE KETONE BODY PRESENT [None]
